FAERS Safety Report 6755838-2 (Version None)
Quarter: 2010Q2

REPORT INFORMATION
  Report Type: 
  Country: None (occurrence: None)
  Receive Date: 20100604
  Receipt Date: 20100527
  Transmission Date: 20101027
  Serious: Yes (Hospitalization)
  Sender: FDA-Public Use
  Company Number: FR-JNJFOC-20100510305

PATIENT
  Age: 55 Year
  Sex: Female

DRUGS (18)
  1. TAVANIC [Suspect]
     Indication: DRUG USE FOR UNKNOWN INDICATION
     Route: 048
  2. PARACETAMOL [Suspect]
     Route: 048
  3. PARACETAMOL [Suspect]
     Indication: DRUG USE FOR UNKNOWN INDICATION
     Route: 048
  4. PREVISCAN (FLUINDIONE) [Interacting]
     Indication: DRUG USE FOR UNKNOWN INDICATION
     Route: 048
  5. SOLUPRED [Suspect]
     Indication: DRUG USE FOR UNKNOWN INDICATION
     Dosage: FOR 2 DAYS
     Route: 048
  6. SOLUPRED [Suspect]
     Dosage: FOR 2 DAYS
     Route: 048
  7. COLCHIMAX [Concomitant]
     Route: 065
  8. LEVOTHYROXINE SODIUM [Concomitant]
     Route: 065
  9. AMLOR [Concomitant]
     Route: 065
  10. KALEORID [Concomitant]
     Route: 065
  11. PLAQUENIL [Concomitant]
     Route: 065
  12. ESOMEPRAZOLE [Concomitant]
     Route: 065
  13. FUROSEMIDE [Concomitant]
     Route: 065
  14. VALACYCLOVIR [Concomitant]
     Route: 065
  15. ZOPICLONE [Concomitant]
     Route: 065
  16. BROMAZEPAM [Concomitant]
     Route: 065
  17. FENOFIBRATE [Concomitant]
     Route: 065
  18. ABUFENE [Concomitant]
     Route: 065

REACTIONS (2)
  - DRUG INTERACTION [None]
  - MUSCLE HAEMORRHAGE [None]
